FAERS Safety Report 8517875-7 (Version None)
Quarter: 2012Q3

REPORT INFORMATION
  Report Type: 
  Country: None (occurrence: None)
  Receive Date: 20120718
  Receipt Date: 20120327
  Transmission Date: 20120928
  Serious: No
  Sender: FDA-Public Use
  Company Number: US-BRISTOL-MYERS SQUIBB COMPANY-15856875

PATIENT
  Sex: Female

DRUGS (2)
  1. COUMADIN [Suspect]
     Dosage: INTERPD AND RESTARTED,DOSE DECREASED
  2. SAVELLA [Suspect]
     Indication: FIBROMYALGIA

REACTIONS (3)
  - HAEMORRHAGE [None]
  - ONYCHOCLASIS [None]
  - INTERNATIONAL NORMALISED RATIO INCREASED [None]
